FAERS Safety Report 14115384 (Version 4)
Quarter: 2018Q1

REPORT INFORMATION
  Report Type: Spontaneous
  Country: JP (occurrence: JP)
  Receive Date: 20171023
  Receipt Date: 20180123
  Transmission Date: 20180508
  Serious: Yes (Other)
  Sender: FDA-Public Use
  Company Number: JP-PFIZER INC-2017451657

PATIENT
  Age: 74 Year

DRUGS (2)
  1. METHYLPREDNISOLONE SODIUM SUCCINATE. [Suspect]
     Active Substance: METHYLPREDNISOLONE SODIUM SUCCINATE
     Indication: ENDOCRINE OPHTHALMOPATHY
     Dosage: 500 MG, CYCLIC (STARTING AT 9:00 AM OVER 1 HOUR FOR THREE CONSECUTIVE DAYS, REPEATED FOR 3 CYCLES)
     Route: 041
  2. THIAMAZOLE [Concomitant]
     Active Substance: METHIMAZOLE
     Dosage: 5 MG, DAILY

REACTIONS (1)
  - Diabetes mellitus [Unknown]
